FAERS Safety Report 7549864-3 (Version None)
Quarter: 2011Q2

REPORT INFORMATION
  Report Type: 
  Country: None (occurrence: None)
  Receive Date: 20110615
  Receipt Date: 20110531
  Transmission Date: 20111010
  Serious: No
  Sender: FDA-Public Use
  Company Number: US-B.I. PHARMACEUTICALS,INC./RIDGEFIELD-2011-BP-14308BP

PATIENT
  Age: 59 Year
  Sex: Female

DRUGS (4)
  1. PRADAXA [Suspect]
     Indication: HEART VALVE REPLACEMENT
     Dosage: 300 MG
     Route: 048
     Dates: start: 20110501
  2. METOPROLOL TARTRATE [Concomitant]
     Indication: HEART RATE DECREASED
     Dosage: 75 MG
     Route: 048
  3. PRADAXA [Suspect]
     Indication: ATRIAL FIBRILLATION
  4. ASPIRIN [Concomitant]
     Indication: CARDIAC DISORDER
     Route: 048

REACTIONS (3)
  - BALANCE DISORDER [None]
  - DYSPEPSIA [None]
  - DIPLOPIA [None]
